FAERS Safety Report 8443477-7 (Version None)
Quarter: 2012Q2

REPORT INFORMATION
  Report Type: 
  Country: None (occurrence: None)
  Receive Date: 20120618
  Receipt Date: 20120606
  Transmission Date: 20120825
  Serious: No
  Sender: FDA-Public Use
  Company Number: US-JNJFOC-20120603912

PATIENT
  Sex: Female
  Weight: 92.99 kg

DRUGS (1)
  1. FENTANYL-100 [Suspect]
     Indication: MYELOFIBROSIS
     Route: 062
     Dates: start: 20120201, end: 20120601

REACTIONS (4)
  - WRONG TECHNIQUE IN DRUG USAGE PROCESS [None]
  - PRODUCT QUALITY ISSUE [None]
  - PAIN [None]
  - DRUG INEFFECTIVE [None]
